FAERS Safety Report 5493970-4 (Version None)
Quarter: 2007Q4

REPORT INFORMATION
  Report Type: 
  Country: None (occurrence: None)
  Receive Date: 20071019
  Receipt Date: 20071016
  Transmission Date: 20080405
  Serious: Yes (Death, Hospitalization)
  Sender: FDA-Public Use
  Company Number: 163-21880-07080426

PATIENT
  Age: 68 Year
  Sex: Female

DRUGS (2)
  1. REVLIMID [Suspect]
     Indication: MULTIPLE MYELOMA
     Dosage: 5 MG, DAILY X21 DAYS, ORAL ; 25 MG, DAILY, X21 DAYS, ORAL
     Route: 048
     Dates: start: 20060306, end: 20060401
  2. REVLIMID [Suspect]
     Indication: MULTIPLE MYELOMA
     Dosage: 5 MG, DAILY X21 DAYS, ORAL ; 25 MG, DAILY, X21 DAYS, ORAL
     Route: 048
     Dates: start: 20070615, end: 20070701

REACTIONS (1)
  - SURGERY [None]
